FAERS Safety Report 5629557-X (Version None)
Quarter: 2008Q1

REPORT INFORMATION
  Report Type: 
  Country: None (occurrence: None)
  Receive Date: 20080213
  Receipt Date: 20080213
  Transmission Date: 20080703
  Serious: No
  Sender: FDA-Public Use
  Company Number: None

PATIENT
  Sex: Male

DRUGS (1)
  1. RYTHMOL [Suspect]
     Dosage: 225MG  TID  PO
     Route: 048

REACTIONS (2)
  - ATRIAL FIBRILLATION [None]
  - PHARMACEUTICAL PRODUCT COMPLAINT [None]
